FAERS Safety Report 8494474-7 (Version None)
Quarter: 2012Q3

REPORT INFORMATION
  Report Type: 
  Country: None (occurrence: None)
  Receive Date: 20120709
  Receipt Date: 20120627
  Transmission Date: 20120928
  Serious: No
  Sender: FDA-Public Use
  Company Number: GB-JNJFOC-20120305967

PATIENT
  Sex: Male
  Weight: 80 kg

DRUGS (5)
  1. DURAGESIC-100 [Suspect]
     Indication: PAIN
     Route: 062
  2. AMITRIPTYLINE HCL [Concomitant]
     Indication: AFFECTIVE DISORDER
     Route: 048
  3. AMITRIPTYLINE HCL [Concomitant]
     Indication: PAIN
     Route: 048
  4. MS CONTIN [Concomitant]
     Indication: PAIN
     Route: 048
  5. LIDOCAINE [Concomitant]
     Indication: PAIN
     Route: 062

REACTIONS (2)
  - DRUG ADMINISTRATION ERROR [None]
  - DRUG INEFFECTIVE [None]
